FAERS Safety Report 7300672-8 (Version None)
Quarter: 2011Q1

REPORT INFORMATION
  Report Type: 
  Country: None (occurrence: None)
  Receive Date: 20110207
  Receipt Date: 20110131
  Transmission Date: 20110831
  Serious: Yes (Death)
  Sender: FDA-Public Use
  Company Number: OSCN-NO-1102L-0051

PATIENT
  Age: 40 Year
  Sex: Female

DRUGS (2)
  1. OMNISCAN [Suspect]
     Indication: PRODUCT USED FOR UNKNOWN INDICATION
     Dosage: SINGLE DOSE ; SINGLE DOSE
     Dates: start: 20031101, end: 20031101
  2. OMNISCAN [Suspect]
     Indication: PRODUCT USED FOR UNKNOWN INDICATION
     Dosage: SINGLE DOSE ; SINGLE DOSE
     Dates: start: 20010101, end: 20010101

REACTIONS (9)
  - MUSCULAR WEAKNESS [None]
  - BLOOD ALKALINE PHOSPHATASE INCREASED [None]
  - SKIN HYPERTROPHY [None]
  - MUSCLE RIGIDITY [None]
  - JOINT CONTRACTURE [None]
  - PERITONEAL DIALYSIS [None]
  - PERITONITIS [None]
  - BLOOD PARATHYROID HORMONE INCREASED [None]
  - BLOOD CALCIUM DECREASED [None]
